FAERS Safety Report 24769646 (Version 1)
Quarter: 2024Q4

REPORT INFORMATION
  Report Type: Spontaneous
  Country: SG (occurrence: SG)
  Receive Date: 20241224
  Receipt Date: 20241224
  Transmission Date: 20250114
  Serious: Yes (Life-Threatening, Hospitalization)
  Sender: STRIDES
  Company Number: SG-STRIDES ARCOLAB LIMITED-2024SP016871

PATIENT
  Age: 33 Year
  Sex: Female

DRUGS (3)
  1. MORPHINE SULFATE [Suspect]
     Active Substance: MORPHINE SULFATE
     Indication: Nerve block
     Dosage: 0.1 MILLIGRAM (IN A TOTAL OF 2.8ML)
     Route: 065
  2. BUPIVACAINE [Suspect]
     Active Substance: BUPIVACAINE
     Indication: Nerve block
     Dosage: 2.4 MILLILITER
     Route: 065
  3. FENTANYL [Suspect]
     Active Substance: FENTANYL
     Indication: Nerve block
     Dosage: 15 MICROGRAM
     Route: 065

REACTIONS (5)
  - Loss of consciousness [Recovered/Resolved]
  - Oxygen saturation decreased [Recovered/Resolved]
  - Medication error [Unknown]
  - Maternal exposure during pregnancy [Unknown]
  - Off label use [Unknown]
